FAERS Safety Report 25760034 (Version 5)
Quarter: 2025Q4

REPORT INFORMATION
  Report Type: Spontaneous
  Country: US (occurrence: US)
  Receive Date: 20250904
  Receipt Date: 20251015
  Transmission Date: 20260117
  Serious: No
  Sender: ROCHE
  Company Number: US-ROCHE-10000379820

PATIENT
  Age: 79 Year
  Sex: Female
  Weight: 100.7 kg

DRUGS (19)
  1. ITOVEBI [Suspect]
     Active Substance: INAVOLISIB
     Indication: Breast cancer metastatic
     Route: 048
     Dates: start: 20250820
  2. ITOVEBI [Suspect]
     Active Substance: INAVOLISIB
     Route: 065
     Dates: start: 20250903
  3. ITOVEBI [Suspect]
     Active Substance: INAVOLISIB
     Dosage: TAKE 2 TABLETS (6 MG TOTAL) BY MOUTH DAILY IN THE MOMING
     Route: 048
  4. ANASTROZOLE [Concomitant]
     Active Substance: ANASTROZOLE
     Dates: start: 202504
  5. SAXagliptin HCI [Concomitant]
     Dosage: TAKE 1 TABLET (2.5 MG TOTAL) BY MOUTH DAILY
     Route: 048
  6. ZETIA [Concomitant]
     Active Substance: EZETIMIBE
     Dosage: TAKE A 1 TABLET BY MOUTH EVERY DAY
     Route: 048
  7. IBRANCE [Concomitant]
     Active Substance: PALBOCICLIB
     Dosage: TAKE 1 TABLET (125 MG TOTAL) BY MOUTH DAILY IN THE MORNING
     Route: 048
     Dates: start: 20250601
  8. ARIMIDEX [Concomitant]
     Active Substance: ANASTROZOLE
     Dosage: TAKE 1 TABLET (1 MG TOTAL) BY MOUTH DAILY
     Route: 048
  9. XANAX [Concomitant]
     Active Substance: ALPRAZOLAM
     Dosage: TAKE 2 TABLETS (0.5 MG TOTAL) BY MOUTH ONCE FOR A DOSE MAX DAILY AMOUNT: 0.5 MG ONE HOUR PRIOR TO PE
     Route: 048
  10. TYLENOL [Concomitant]
     Active Substance: ACETAMINOPHEN
     Dosage: TAKE 2 TABLETS (650 MG TOTAL) BY MOUTH EVERY 6 HOURS AS NEEDED
     Route: 048
  11. ECOTRIN [Concomitant]
     Active Substance: ASPIRIN
     Dosage: TAKE 1 TABLET (81 MG TOTAL) BY MOUTH DAILY
     Route: 048
  12. glimepiride (AMARYL) [Concomitant]
     Dosage: 1 TAB PO BID WITH MEALS
     Route: 048
  13. FIBER THERAPY (CALCIUM POLYCARBOPHIL) [Concomitant]
     Active Substance: CALCIUM POLYCARBOPHIL
     Route: 048
  14. COZAAR [Concomitant]
     Active Substance: LOSARTAN POTASSIUM
     Dosage: TAKE 1 TABLET (100 MG TOTAL) BY MOUTH DAILY
     Route: 048
  15. hydroCHLOROthiazide (HYDRODIURIL) [Concomitant]
     Dosage: TAKE 1 TABLET BY MOUTH EVERY DAY
     Route: 048
  16. FLUTICASONE [Concomitant]
     Active Substance: FLUTICASONE
     Dosage: DOSE: 50 MCG/ACT?ADMINISTER 1 SPRAY INTO AFFECTED NOSTRIL(S) DAILY
  17. metFORMIN (GLUCOPHAGE-XR) [Concomitant]
     Dosage: TAKE 1 TABLET (500 MG TOTAL) BY MOUTH 2 TIMES DAILY (WITH WITH WEALS) PT TAKING 500 MG IN AM AND 100
     Route: 048
  18. SYNTHROID [Concomitant]
     Active Substance: LEVOTHYROXINE SODIUM
     Dosage: DOSE: 100 MCG?TAKE 1 TABLET (100 MCG TOTAL) BY MOUTH DAILY
     Route: 048
  19. PROTONIX [Concomitant]
     Active Substance: PANTOPRAZOLE SODIUM
     Dosage: TAKE 1 TABLET (40 MG TOTAL) BY MOUTH ONCE A WEEK SAT
     Route: 048

REACTIONS (5)
  - Blood glucose increased [Unknown]
  - Type 2 diabetes mellitus [Not Recovered/Not Resolved]
  - Haematocrit decreased [Unknown]
  - Platelet count increased [Unknown]
  - Blood bilirubin increased [Unknown]

NARRATIVE: CASE EVENT DATE: 20250828
